FAERS Safety Report 10854308 (Version 2)
Quarter: 2016Q1

REPORT INFORMATION
  Report Type: Other
  Country: None (occurrence: FR)
  Receive Date: 20150218
  Receipt Date: 20160209
  Transmission Date: 20160525
  Serious: Yes (Hospitalization)
  Sender: FDA-Public Use
  Company Number: FR-2015-0462

PATIENT
  Age: 1 Day
  Sex: Female

DRUGS (2)
  1. HEMANGEOL [Suspect]
     Active Substance: PROPRANOLOL HYDROCHLORIDE
     Indication: LUNG CARCINOMA CELL TYPE UNSPECIFIED STAGE 0
     Dates: start: 2012, end: 20130405
  2. CISPLATIN. [Suspect]
     Active Substance: CISPLATIN
     Dates: start: 2012, end: 201303

REACTIONS (2)
  - Weight gain poor [None]
  - Diaphragmatic hernia [Recovered/Resolved]

NARRATIVE: CASE EVENT DATE: 2014
